FAERS Safety Report 7391934-7 (Version None)
Quarter: 2011Q2

REPORT INFORMATION
  Report Type: 
  Country: None (occurrence: None)
  Receive Date: 20110404
  Receipt Date: 20110331
  Transmission Date: 20111010
  Serious: Yes (Hospitalization, Other)
  Sender: FDA-Public Use
  Company Number: US-AMGEN-USASP2010000891

PATIENT
  Age: 55 Year
  Sex: Female

DRUGS (17)
  1. RITUXIMAB [Concomitant]
     Dosage: UNK
     Dates: start: 20101001, end: 20101022
  2. PENTAMIDINE                        /00187102/ [Concomitant]
  3. NPLATE [Suspect]
     Dates: start: 20100920, end: 20101129
  4. PREDNISONE [Concomitant]
  5. FLUCONAZOLE [Concomitant]
  6. CIPRO                              /00042702/ [Concomitant]
     Dates: start: 20101001, end: 20101001
  7. NORVASC [Concomitant]
  8. ATOVAQUONE [Concomitant]
  9. MICAFUNGIN [Concomitant]
  10. SYNTHROID [Concomitant]
  11. POSACONAZOLE [Concomitant]
  12. DANAZOL [Concomitant]
     Dosage: UNK
     Dates: start: 20100927
  13. NPLATE [Suspect]
     Indication: IDIOPATHIC THROMBOCYTOPENIC PURPURA
     Dosage: 10 A?G/KG, UNK
     Dates: start: 20100920, end: 20101129
  14. IMMUNOGLOBULINS [Concomitant]
     Dosage: UNK
     Route: 042
     Dates: start: 20100823, end: 20100827
  15. ACYCLOVIR [Concomitant]
  16. CYCLOSPORINE [Concomitant]
     Dosage: UNK
     Dates: start: 20100907, end: 20101006
  17. AMICAR [Concomitant]

REACTIONS (2)
  - DRUG INEFFECTIVE [None]
  - IDIOPATHIC THROMBOCYTOPENIC PURPURA [None]
